FAERS Safety Report 10340276 (Version 2)
Quarter: 2014Q3

REPORT INFORMATION
  Report Type: Report from Study
  Country: US (occurrence: US)
  Receive Date: 20140724
  Receipt Date: 20140724
  Transmission Date: 20150326
  Serious: Yes (Hospitalization, Other)
  Sender: FDA-Public Use
  Company Number: US-BAYER-2014-079600

PATIENT
  Age: 74 Year
  Sex: Female

DRUGS (5)
  1. STIVARGA [Suspect]
     Active Substance: REGORAFENIB
     Indication: RECTAL CANCER
     Dosage: 3 PILLS A DAY
     Route: 048
     Dates: start: 201405, end: 2014
  2. STIVARGA [Suspect]
     Active Substance: REGORAFENIB
     Indication: RECTAL CANCER
     Dosage: 160 MG DAILY
     Route: 048
     Dates: start: 20140427, end: 2014
  3. STIVARGA [Suspect]
     Active Substance: REGORAFENIB
     Indication: RECTAL CANCER
     Dosage: 80 MG, QD
     Route: 048
     Dates: start: 2014
  4. STIVARGA [Suspect]
     Active Substance: REGORAFENIB
     Indication: RECTAL CANCER
     Dosage: 160 MG DAILY
     Route: 048
     Dates: start: 20140505, end: 201405
  5. STIVARGA [Suspect]
     Active Substance: REGORAFENIB
     Indication: RECTAL CANCER
     Dosage: 40MG, TAKE FOUR TABLETS DAILY
     Route: 048
     Dates: start: 20140504

REACTIONS (10)
  - Fatigue [None]
  - Aphagia [Unknown]
  - Pollakiuria [None]
  - Urinary tract infection [None]
  - Weight decreased [Unknown]
  - Rash [Recovered/Resolved]
  - Dyspnoea [None]
  - Fatigue [None]
  - Dehydration [Unknown]
  - Feeling abnormal [Unknown]

NARRATIVE: CASE EVENT DATE: 2014
